FAERS Safety Report 7743188-7 (Version None)
Quarter: 2011Q3

REPORT INFORMATION
  Report Type: 
  Country: None (occurrence: None)
  Receive Date: 20110819
  Receipt Date: 20110429
  Transmission Date: 20111222
  Serious: No
  Sender: FDA-Public Use
  Company Number: 033217

PATIENT
  Sex: Female

DRUGS (1)
  1. LACOSAMIDE [Suspect]
     Indication: CONVULSION
     Dosage: 50 MG QD, 50 MG FOR 3 DAYS AND 100 G ON DAY 4 ORAL
     Route: 048
     Dates: start: 20110428, end: 20110428

REACTIONS (4)
  - PRURITUS [None]
  - MUSCLE TWITCHING [None]
  - RESTLESSNESS [None]
  - RESTLESS LEGS SYNDROME [None]
